FAERS Safety Report 16543888 (Version 1)
Quarter: 2019Q3

REPORT INFORMATION
  Report Type: Spontaneous
  Country: US (occurrence: US)
  Receive Date: 20190525
  Receipt Date: 20190525
  Transmission Date: 20191004
  Serious: Yes (Hospitalization)
  Sender: FDA-Public Use
  Company Number: None

PATIENT
  Sex: Male
  Weight: 71.7 kg

DRUGS (1)
  1. TEMOZOLOMIDE. [Suspect]
     Active Substance: TEMOZOLOMIDE
     Dates: end: 20190311

REACTIONS (6)
  - Seizure [None]
  - Neoplasm recurrence [None]
  - Confusional state [None]
  - Aphasia [None]
  - Brain oedema [None]
  - Radiation necrosis [None]

NARRATIVE: CASE EVENT DATE: 20190502
